FAERS Safety Report 12351170 (Version 2)
Quarter: 2016Q2

REPORT INFORMATION
  Report Type: Spontaneous
  Country: ES (occurrence: ES)
  Receive Date: 20160510
  Receipt Date: 20160524
  Transmission Date: 20160815
  Serious: Yes (Hospitalization)
  Sender: FDA-Public Use
  Company Number: ES-INCYTE CORPORATION-2016IN002711

PATIENT
  Age: 65 Year
  Sex: Female

DRUGS (2)
  1. JAKAFI [Suspect]
     Active Substance: RUXOLITINIB
     Dosage: 5MG, Q12H (12HOURLY)
     Route: 048
  2. JAKAFI [Suspect]
     Active Substance: RUXOLITINIB
     Indication: PRIMARY MYELOFIBROSIS
     Dosage: UNK
     Route: 048
     Dates: start: 201509, end: 201511

REACTIONS (9)
  - Generalised oedema [Recovered/Resolved]
  - Bicytopenia [Recovered/Resolved]
  - White blood cell count increased [Unknown]
  - Splenomegaly [Recovered/Resolved]
  - Mean cell volume decreased [Unknown]
  - Activated partial thromboplastin time prolonged [Unknown]
  - Otitis media [Unknown]
  - Eosinophil count decreased [Unknown]
  - Basophil percentage increased [Unknown]

NARRATIVE: CASE EVENT DATE: 20160103
